FAERS Safety Report 24654797 (Version 1)
Quarter: 2024Q4

REPORT INFORMATION
  Report Type: Report from Study
  Country: JP (occurrence: JP)
  Receive Date: 20241122
  Receipt Date: 20241122
  Transmission Date: 20250115
  Serious: Yes (Other)
  Sender: BAUSCH AND LOMB
  Company Number: JP-BAUSCH-BL-2023-019122

PATIENT
  Age: 60 Year
  Sex: Male
  Weight: 62 kg

DRUGS (1)
  1. EFINACONAZOLE [Suspect]
     Active Substance: EFINACONAZOLE
     Indication: Dermatophytosis of nail
     Route: 061
     Dates: start: 20221220, end: 20231120

REACTIONS (1)
  - Gastric cancer stage I [Recovered/Resolved]

NARRATIVE: CASE EVENT DATE: 20231205
